FAERS Safety Report 21733764 (Version 1)
Quarter: 2022Q4

REPORT INFORMATION
  Report Type: Spontaneous
  Country: US (occurrence: None)
  Receive Date: 20221214
  Receipt Date: 20221214
  Transmission Date: 20230113
  Serious: No
  Sender: FDA-Public Use
  Company Number: None

PATIENT
  Sex: Male

DRUGS (1)
  1. TALTZ [Suspect]
     Active Substance: IXEKIZUMAB
     Indication: Psoriatic arthropathy
     Dosage: 80MG EVERY 4 WEEKS SUBQ
     Route: 058
     Dates: start: 20221128

REACTIONS (9)
  - Drug ineffective [None]
  - Asthma [None]
  - Rhinorrhoea [None]
  - Neuralgia [None]
  - Arthralgia [None]
  - Neck pain [None]
  - Spinal pain [None]
  - Arthralgia [None]
  - Incorrect dose administered [None]
